FAERS Safety Report 9916541 (Version 1)
Quarter: 2014Q1

REPORT INFORMATION
  Report Type: Spontaneous
  Country: CA (occurrence: None)
  Receive Date: 20140219
  Receipt Date: 20140219
  Transmission Date: 20141002
  Serious: Yes (Other)
  Sender: FDA-Public Use
  Company Number: 2014AP001327

PATIENT
  Age: 62 Year
  Sex: Male

DRUGS (3)
  1. CLARITHROMYCIN (CLARITHROMYCIN) [Suspect]
     Indication: INFLUENZA
     Dosage: UNKNOWN ; TAB ; PO ; TOTAL 1 DAY
     Route: 048
     Dates: start: 20140110, end: 20140110
  2. BISOLVON [Suspect]
     Indication: INFLUENZA
     Route: 048
     Dates: start: 20140110, end: 20140110
  3. ACETYLSALICYLIC ACID [Suspect]
     Indication: INFLUENZA
     Route: 048
     Dates: start: 20140110, end: 20140110

REACTIONS (4)
  - Hypersensitivity [None]
  - Urticaria [None]
  - Pruritus [None]
  - Local swelling [None]
